FAERS Safety Report 12119206 (Version 1)
Quarter: 2016Q1

REPORT INFORMATION
  Report Type: Spontaneous
  Country: US (occurrence: None)
  Receive Date: 20160225
  Receipt Date: 20160225
  Transmission Date: 20160526
  Serious: No
  Sender: FDA-Public Use
  Company Number: None

PATIENT
  Age: 63 Year
  Sex: Male

DRUGS (14)
  1. FLOMAX [Concomitant]
     Active Substance: TAMSULOSIN HYDROCHLORIDE
  2. CELEXA [Concomitant]
     Active Substance: CITALOPRAM HYDROBROMIDE
  3. IBUPROFEN. [Concomitant]
     Active Substance: IBUPROFEN
  4. KEPPRA [Concomitant]
     Active Substance: LEVETIRACETAM
  5. VITAMIN B COMPLEX [Concomitant]
     Active Substance: CYANOCOBALAMIN\DEXPANTHENOL\NIACINAMIDE\PYRIDOXINE HYDROCHLORIDE\RIBOFLAVIN 5^-PHOSPHATE SODIUM\THIAMINE HYDROCHLORIDE\VITAMIN B COMPLEX
  6. MATULANE [Concomitant]
     Active Substance: PROCARBAZINE HYDROCHLORIDE
  7. XARELTO [Concomitant]
     Active Substance: RIVAROXABAN
  8. ZOFRAN [Concomitant]
     Active Substance: ONDANSETRON HYDROCHLORIDE
  9. BIOTIN [Concomitant]
     Active Substance: BIOTIN
  10. ATIVAN [Concomitant]
     Active Substance: LORAZEPAM
  11. VITAMIN C [Concomitant]
     Active Substance: ASCORBIC ACID
  12. GLEOSTINE [Suspect]
     Active Substance: LOMUSTINE
     Indication: NEOPLASM MALIGNANT
     Dosage: 200 MG DAY 1 OF CYCLE ORAL
     Route: 048
     Dates: start: 20150118
  13. DEXAMETHASON [Concomitant]
     Active Substance: DEXAMETHASONE
  14. MULTIVITAMIN [Concomitant]
     Active Substance: VITAMINS

REACTIONS (2)
  - Fatigue [None]
  - Nausea [None]

NARRATIVE: CASE EVENT DATE: 20160118
